FAERS Safety Report 6427997-2 (Version None)
Quarter: 2009Q4

REPORT INFORMATION
  Report Type: 
  Country: None (occurrence: None)
  Receive Date: 20091105
  Receipt Date: 20091030
  Transmission Date: 20100525
  Serious: Yes (Death)
  Sender: FDA-Public Use
  Company Number: GB-ROCHE-659814

PATIENT
  Sex: Male

DRUGS (4)
  1. CAPECITABINE [Suspect]
     Indication: RECTAL CANCER
     Route: 048
  2. CAPECITABINE [Suspect]
     Route: 048
  3. IRINOTECAN HCL [Suspect]
     Indication: RECTAL CANCER
     Route: 042
  4. IRINOTECAN HCL [Suspect]
     Route: 042

REACTIONS (2)
  - CARDIAC ARREST [None]
  - OPERATIVE HAEMORRHAGE [None]
